FAERS Safety Report 23557135 (Version 1)
Quarter: 2024Q1

REPORT INFORMATION
  Report Type: Spontaneous
  Country: US (occurrence: US)
  Receive Date: 20240223
  Receipt Date: 20240223
  Transmission Date: 20240410
  Serious: No
  Sender: FDA-Public Use
  Company Number: US-BIOCON BIOLOGICS LIMITED-2023M1106077

PATIENT
  Age: 90 Year
  Sex: Female

DRUGS (8)
  1. SEMGLEE (INSULIN GLARGINE-YFGN) [Suspect]
     Active Substance: INSULIN GLARGINE-YFGN
     Indication: Type 1 diabetes mellitus
     Dosage: UNK
     Route: 058
  2. DEVICE [Suspect]
     Active Substance: DEVICE
     Indication: Type 1 diabetes mellitus
  3. METOPROLOL [Concomitant]
     Active Substance: METOPROLOL
     Dosage: UNK
     Route: 065
  4. ASPIRIN [Concomitant]
     Active Substance: ASPIRIN
     Dosage: UNK
     Route: 065
  5. TRAZODONE [Concomitant]
     Active Substance: TRAZODONE HYDROCHLORIDE
     Dosage: UNK
     Route: 065
  6. LACTOBACILLUS ACIDOPHILUS\LACTOBACILLUS DELBRUECKII SUBSP. BULGARICUS [Concomitant]
     Active Substance: LACTOBACILLUS ACIDOPHILUS\LACTOBACILLUS DELBRUECKII SUBSP. BULGARICUS
     Dosage: UNK
     Route: 065
  7. FERROUS SULFATE [Concomitant]
     Active Substance: FERROUS SULFATE
     Dosage: UNK
     Route: 065
  8. CRANBERRY [Concomitant]
     Active Substance: CRANBERRY
     Dosage: UNK
     Route: 065

REACTIONS (2)
  - Needle issue [Unknown]
  - Product quality issue [Unknown]
